FAERS Safety Report 13568521 (Version 2)
Quarter: 2017Q2

REPORT INFORMATION
  Report Type: Spontaneous
  Country: HU (occurrence: HU)
  Receive Date: 20170522
  Receipt Date: 20170605
  Transmission Date: 20170830
  Serious: Yes (Other)
  Sender: FDA-Public Use
  Company Number: HU-PFIZER INC-2017110228

PATIENT
  Age: 30 Year
  Sex: Male

DRUGS (2)
  1. REFACTO AF [Suspect]
     Active Substance: ANTIHEMOPHILIC FACTOR, HUMAN RECOMBINANT RESIDUES 743-1636 DELETED
     Dosage: 1000 IU, 3X WEEKLY (3*3000IU PER WEEK: 1000IU+2000IU)
     Route: 042
     Dates: start: 20160208
  2. REFACTO AF [Suspect]
     Active Substance: ANTIHEMOPHILIC FACTOR, HUMAN RECOMBINANT RESIDUES 743-1636 DELETED
     Dosage: 2000 IU, 3X WEEKLY (3*3000IU PER WEEK: 1000IU+2000IU
     Route: 042
     Dates: start: 20160208

REACTIONS (2)
  - Haemarthrosis [Recovered/Resolved]
  - Injury [Recovered/Resolved]

NARRATIVE: CASE EVENT DATE: 201702
